FAERS Safety Report 8620668-3 (Version None)
Quarter: 2012Q3

REPORT INFORMATION
  Report Type: 
  Country: None (occurrence: None)
  Receive Date: 20120824
  Receipt Date: 20110222
  Transmission Date: 20120928
  Serious: Yes (Hospitalization)
  Sender: FDA-Public Use
  Company Number: AR-009507513-2011SP001987

PATIENT

DRUGS (12)
  1. PLACEBO [Suspect]
     Indication: HEPATITIS C
     Dosage: 2400 MG, UNK
     Route: 048
     Dates: start: 20100715, end: 20110113
  2. SIMVASTATIN [Suspect]
     Dosage: 2400 MG, UNK
     Route: 048
     Dates: start: 20100715, end: 20110113
  3. PEGINTERFERON ALFA-2B [Suspect]
     Indication: HEPATITIS C
     Dosage: 2400 MG, UNK
     Route: 048
     Dates: start: 20100715, end: 20110113
  4. SIMVASTATIN [Suspect]
     Indication: HEPATITIS C
     Dosage: 2400 MG, UNK
     Route: 048
     Dates: start: 20100715, end: 20110113
  5. RIBAVIRIN [Suspect]
     Indication: HEPATITIS C
     Dosage: 2400 MG, UNK
     Route: 048
     Dates: start: 20100715, end: 20110113
  6. PEG-INTRON [Suspect]
     Indication: HEPATITIS C
     Dosage: 150 UNITS
     Route: 058
     Dates: start: 20100715, end: 20110106
  7. SIMVASTATIN [Suspect]
     Dosage: 2400 MG, UNK
     Route: 048
     Dates: start: 20100715, end: 20110113
  8. SIMVASTATIN [Suspect]
     Dosage: 2400 MG, UNK
     Route: 048
     Dates: start: 20100715, end: 20110113
  9. BLINDED BOCEPREVIR [Suspect]
     Indication: HEPATITIS C
     Dosage: 2400 MG, UNK
     Route: 048
     Dates: start: 20100715, end: 20110113
  10. SIMVASTATIN [Suspect]
     Indication: HEPATITIS C
     Dosage: 2400 MG, UNK
     Route: 048
     Dates: start: 20100715, end: 20110113
  11. RIBAVIRIN [Suspect]
     Indication: HEPATITIS C
     Dosage: 2400 MG, UNK
     Route: 048
     Dates: start: 20100715, end: 20110112
  12. SIMVASTATIN [Suspect]
     Dosage: 2400 MG, UNK
     Route: 048
     Dates: start: 20100715, end: 20110113

REACTIONS (1)
  - ANAEMIA [None]
